FAERS Safety Report 21943171 (Version 2)
Quarter: 2023Q1

REPORT INFORMATION
  Report Type: Spontaneous
  Country: US (occurrence: US)
  Receive Date: 20230202
  Receipt Date: 20230220
  Transmission Date: 20230418
  Serious: Yes (Hospitalization)
  Sender: FDA-Public Use
  Company Number: US-TEVA-2023-US-2850273

PATIENT
  Age: 57 Year
  Sex: Male

DRUGS (4)
  1. METHOTREXATE [Suspect]
     Active Substance: METHOTREXATE
     Indication: Rheumatoid arthritis
     Route: 065
  2. ADALIMUMAB [Suspect]
     Active Substance: ADALIMUMAB
     Indication: Rheumatoid arthritis
     Route: 065
  3. AMLODIPINE [Concomitant]
     Active Substance: AMLODIPINE BESYLATE
     Indication: Hypertension
     Route: 065
  4. FOLIC ACID [Concomitant]
     Active Substance: FOLIC ACID
     Indication: Supplementation therapy
     Route: 065

REACTIONS (7)
  - Pneumothorax [Not Recovered/Not Resolved]
  - Salmonellosis [Recovered/Resolved]
  - Lung disorder [Recovered/Resolved]
  - Pleural disorder [Recovered/Resolved]
  - Pleuritic pain [Recovered/Resolved]
  - Pleural effusion [Recovered/Resolved]
  - Infectious pleural effusion [Recovered/Resolved]
